FAERS Safety Report 7461475-7 (Version None)
Quarter: 2011Q2

REPORT INFORMATION
  Report Type: 
  Country: None (occurrence: None)
  Receive Date: 20110506
  Receipt Date: 20110503
  Transmission Date: 20111010
  Serious: Yes (Other)
  Sender: FDA-Public Use
  Company Number: US-PFIZER INC-2011095448

PATIENT
  Sex: Male
  Weight: 111.11 kg

DRUGS (4)
  1. LYRICA [Suspect]
     Indication: PRURITUS
     Dosage: 50 MG, 2X/DAY
     Route: 048
     Dates: start: 20110401
  2. LYRICA [Suspect]
     Indication: PARAESTHESIA
  3. RAPAFLO [Concomitant]
     Indication: PROSTATIC DISORDER
     Dosage: UNK
  4. HALCION [Concomitant]
     Indication: SLEEP DISORDER
     Dosage: 0.25 MG, UNK

REACTIONS (2)
  - SOMNOLENCE [None]
  - VISION BLURRED [None]
